FAERS Safety Report 9380082 (Version 1)
Quarter: 2013Q3

REPORT INFORMATION
  Report Type: Spontaneous
  Country: DE (occurrence: DE)
  Receive Date: 20130702
  Receipt Date: 20130702
  Transmission Date: 20140515
  Serious: Yes (Other)
  Sender: FDA-Public Use
  Company Number: DE-B.I. PHARMACEUTICALS,INC./RIDGEFIELD-2013-DE-01721DE

PATIENT
  Age: 74 Year
  Sex: Male

DRUGS (4)
  1. PRADAXA [Suspect]
     Indication: ATRIAL FIBRILLATION
     Dosage: 100 NR
     Dates: start: 20130430, end: 20130624
  2. RAMIPRIL [Concomitant]
  3. METOPROLOL [Concomitant]
  4. SIMVASTATIN [Concomitant]

REACTIONS (1)
  - Cerebrovascular accident [Unknown]
